FAERS Safety Report 5723261-5 (Version None)
Quarter: 2008Q2

REPORT INFORMATION
  Report Type: 
  Country: None (occurrence: None)
  Receive Date: 20080430
  Receipt Date: 20080218
  Transmission Date: 20081010
  Serious: No
  Sender: FDA-Public Use
  Company Number: US-ASTRAZENECA-2008UW03330

PATIENT
  Age: 83 Year
  Sex: Female
  Weight: 47.6 kg

DRUGS (2)
  1. NEXIUM [Suspect]
     Indication: REFLUX OESOPHAGITIS
     Route: 048
     Dates: start: 20080201
  2. NEXIUM [Suspect]
     Indication: DYSPEPSIA
     Route: 048
     Dates: start: 20080201

REACTIONS (4)
  - ABNORMAL DREAMS [None]
  - DEPRESSED MOOD [None]
  - NEGATIVE THOUGHTS [None]
  - PHOTOPSIA [None]
